FAERS Safety Report 4807673-X (Version None)
Quarter: 2005Q4

REPORT INFORMATION
  Report Type: 
  Country: None (occurrence: None)
  Receive Date: 20051024
  Receipt Date: 20050706
  Transmission Date: 20060501
  Serious: Yes (Death)
  Sender: FDA-Public Use
  Company Number: PHEH2005US07463

PATIENT
  Sex: Male

DRUGS (1)
  1. NEORAL [Suspect]
     Indication: TRANSPLANT

REACTIONS (1)
  - INFECTION [None]
